FAERS Safety Report 23500308 (Version 3)
Quarter: 2024Q1

REPORT INFORMATION
  Report Type: Spontaneous
  Country: FR (occurrence: FR)
  Receive Date: 20240208
  Receipt Date: 20240304
  Transmission Date: 20240410
  Serious: Yes (Hospitalization)
  Sender: FDA-Public Use
  Company Number: None

PATIENT
  Age: 71 Year
  Sex: Male
  Weight: 118 kg

DRUGS (18)
  1. ERLEADA [Suspect]
     Active Substance: APALUTAMIDE
     Indication: Prostate cancer
     Route: 048
     Dates: start: 20231109, end: 20231224
  2. OXYCODONE HYDROCHLORIDE [Suspect]
     Active Substance: OXYCODONE HYDROCHLORIDE
     Indication: Pain
     Dosage: VARIABLE
     Route: 048
     Dates: end: 20231226
  3. OXYCODONE HYDROCHLORIDE [Suspect]
     Active Substance: OXYCODONE HYDROCHLORIDE
     Dosage: IN CASE OF PAIN, TAKE ONE CAPSULE.
     Route: 048
     Dates: end: 20231226
  4. METOPIMAZINE [Suspect]
     Active Substance: METOPIMAZINE
     Indication: Vomiting
     Route: 048
     Dates: end: 20231226
  5. METOPIMAZINE [Suspect]
     Active Substance: METOPIMAZINE
     Route: 048
     Dates: end: 20231226
  6. METFORMIN HYDROCHLORIDE [Suspect]
     Active Substance: METFORMIN HYDROCHLORIDE
     Indication: Diabetes mellitus
     Route: 048
     Dates: end: 20231226
  7. MESTINON [Suspect]
     Active Substance: PYRIDOSTIGMINE BROMIDE
     Indication: Product used for unknown indication
     Route: 048
     Dates: end: 20231226
  8. MESTINON [Suspect]
     Active Substance: PYRIDOSTIGMINE BROMIDE
     Route: 048
     Dates: end: 20231226
  9. MOVICOL [Suspect]
     Active Substance: POLYETHYLENE GLYCOL 3350\POTASSIUM CHLORIDE\SODIUM BICARBONATE\SODIUM CHLORIDE
     Indication: Constipation
     Dosage: 2 SACHETS IN THE MORNING
     Route: 048
     Dates: end: 20231226
  10. TRIPTORELIN [Concomitant]
     Active Substance: TRIPTORELIN
     Route: 058
  11. TRIPTORELIN [Concomitant]
     Active Substance: TRIPTORELIN
     Route: 058
  12. HYDROCHLOROTHIAZIDE\IRBESARTAN [Concomitant]
     Active Substance: HYDROCHLOROTHIAZIDE\IRBESARTAN
     Dosage: 300/25 IN THE MORNING
     Route: 048
  13. ACETAMINOPHEN [Concomitant]
     Active Substance: ACETAMINOPHEN
     Route: 048
  14. LERCANIDIPINE HYDROCHLORIDE [Concomitant]
     Active Substance: LERCANIDIPINE HYDROCHLORIDE
     Route: 048
     Dates: end: 20231226
  15. AMILORIDE HYDROCHLORIDE [Concomitant]
     Active Substance: AMILORIDE HYDROCHLORIDE
     Route: 048
     Dates: end: 20231226
  16. AMILORIDE HYDROCHLORIDE [Concomitant]
     Active Substance: AMILORIDE HYDROCHLORIDE
     Route: 048
     Dates: end: 20231226
  17. ALDOMET [Concomitant]
     Active Substance: METHYLDOPA
     Route: 048
     Dates: end: 20231226
  18. ALDOMET [Concomitant]
     Active Substance: METHYLDOPA
     Route: 048
     Dates: end: 20231226

REACTIONS (3)
  - Agranulocytosis [Recovered/Resolved]
  - Rash maculo-papular [Recovering/Resolving]
  - Intestinal transit time decreased [Recovered/Resolved]

NARRATIVE: CASE EVENT DATE: 20231201
